FAERS Safety Report 17789098 (Version 3)
Quarter: 2021Q1

REPORT INFORMATION
  Report Type: Spontaneous
  Country: US (occurrence: US)
  Receive Date: 20200514
  Receipt Date: 20210111
  Transmission Date: 20210419
  Serious: Yes (Hospitalization, Other)
  Sender: FDA-Public Use
  Company Number: US-ALLERGAN-2007839US

PATIENT
  Sex: Female
  Weight: 73 kg

DRUGS (18)
  1. FIRDAPSE [Suspect]
     Active Substance: AMIFAMPRIDINE PHOSPHATE
     Indication: MYASTHENIC SYNDROME
     Dosage: UNK
     Route: 048
     Dates: start: 2011
  2. GABAPENTIN. [Concomitant]
     Active Substance: GABAPENTIN
  3. FIRDAPSE [Suspect]
     Active Substance: AMIFAMPRIDINE PHOSPHATE
     Dosage: 20 MG, QID
     Route: 048
     Dates: start: 20190215
  4. VITAMIN D3 [Concomitant]
     Active Substance: CHOLECALCIFEROL
     Dosage: 2000 UNITS, QD
     Route: 048
  5. VITAMIN C [Concomitant]
     Active Substance: ASCORBIC ACID
  6. TRAMADOL. [Concomitant]
     Active Substance: TRAMADOL
     Indication: PAIN
     Dosage: 50 MG, Q6HR, AS NEEDED
     Route: 048
     Dates: end: 202001
  7. HYDROCHLOROTHIAZIDE UNK [Suspect]
     Active Substance: HYDROCHLOROTHIAZIDE
     Indication: PRODUCT USED FOR UNKNOWN INDICATION
     Dosage: 25 MG, QD
     Route: 048
     Dates: end: 202001
  8. CYCLOSPORINE. [Concomitant]
     Active Substance: CYCLOSPORINE
     Dosage: 50 MG, QID
     Route: 048
  9. LEXAPRO [Concomitant]
     Active Substance: ESCITALOPRAM OXALATE
     Dosage: 20 MG, BID
     Route: 048
  10. SYNTHROID [Concomitant]
     Active Substance: LEVOTHYROXINE SODIUM
     Dosage: 112 ?G, QD
     Route: 048
  11. TYLENOL [Concomitant]
     Active Substance: ACETAMINOPHEN
  12. BACLOFEN. [Concomitant]
     Active Substance: BACLOFEN
     Indication: MUSCLE SPASMS
     Dosage: 10 MG, BID, AS NEEDED
     Route: 048
  13. LASIX [Concomitant]
     Active Substance: FUROSEMIDE
  14. FIRDAPSE [Suspect]
     Active Substance: AMIFAMPRIDINE PHOSPHATE
     Dosage: 20 MG, QID
     Route: 048
  15. CALCIUM CARBONATE. [Concomitant]
     Active Substance: CALCIUM CARBONATE
     Dosage: 1200 MG, QD
     Route: 048
  16. PROTONIX [Concomitant]
     Active Substance: PANTOPRAZOLE SODIUM
     Dosage: 40 MG, QD
     Route: 048
  17. PREDNISONE. [Concomitant]
     Active Substance: PREDNISONE
     Dosage: 15 MG, QD
     Route: 048
  18. VITAMIN B12 [Concomitant]
     Active Substance: CYANOCOBALAMIN
     Dosage: 2000 ?G, QD
     Route: 048

REACTIONS (29)
  - Muscular weakness [Not Recovered/Not Resolved]
  - Dyspnoea exertional [Not Recovered/Not Resolved]
  - Head injury [Recovering/Resolving]
  - Fall [Recovered/Resolved]
  - Blood magnesium decreased [Recovered/Resolved]
  - Hypertension [Recovered/Resolved]
  - Blood potassium decreased [Recovered/Resolved]
  - Nausea [Unknown]
  - Vomiting [Unknown]
  - Pain in extremity [Unknown]
  - Skin abrasion [Unknown]
  - Chronic obstructive pulmonary disease [Unknown]
  - Contusion [Recovering/Resolving]
  - Limb discomfort [Unknown]
  - Back pain [Recovering/Resolving]
  - Deep vein thrombosis [Recovering/Resolving]
  - Abdominal pain [Recovered/Resolved]
  - Tachycardia [Recovered/Resolved]
  - Palpitations [Unknown]
  - Oedema peripheral [Recovered/Resolved]
  - Cough [Unknown]
  - Leukocytosis [Recovering/Resolving]
  - Thrombophlebitis superficial [Unknown]
  - Anxiety [Unknown]
  - Arthralgia [Unknown]
  - Emphysema [Not Recovered/Not Resolved]
  - Pancreatic mass [Unknown]
  - Ulcer [Recovered/Resolved]
  - Headache [Recovered/Resolved]

NARRATIVE: CASE EVENT DATE: 201907
